FAERS Safety Report 6220387-7 (Version None)
Quarter: 2009Q2

REPORT INFORMATION
  Report Type: 
  Country: None (occurrence: None)
  Receive Date: 20090610
  Receipt Date: 20090604
  Transmission Date: 20091009
  Serious: Yes (Other)
  Sender: FDA-Public Use
  Company Number: BR-BRISTOL-MYERS SQUIBB COMPANY-14645998

PATIENT
  Age: 57 Year
  Sex: Male
  Weight: 104 kg

DRUGS (3)
  1. APROZIDE [Suspect]
     Indication: HYPERTENSION
     Dosage: APROZIDE(IRBESARTAN,HYDROCHLORTHIAZIDE)/300MG/TABLETS;START-ABOUT 2 MONTHS AGO
     Route: 048
  2. METFORMIN [Concomitant]
     Indication: DIABETES MELLITUS
     Route: 048
     Dates: start: 19990101
  3. GLIMEPIRIDE [Concomitant]
     Indication: DIABETES MELLITUS
     Route: 048
     Dates: start: 19990101

REACTIONS (2)
  - DRUG INEFFECTIVE [None]
  - EYE HAEMORRHAGE [None]
